FAERS Safety Report 23091524 (Version 2)
Quarter: 2024Q1

REPORT INFORMATION
  Report Type: Report from Study
  Country: BR (occurrence: BR)
  Receive Date: 20231020
  Receipt Date: 20240207
  Transmission Date: 20240409
  Serious: Yes (Hospitalization)
  Sender: FDA-Public Use
  Company Number: BR-TEVA-2023-BR-2933293

PATIENT
  Age: 66 Year
  Sex: Male
  Weight: 79.2 kg

DRUGS (18)
  1. LENALIDOMIDE [Suspect]
     Active Substance: LENALIDOMIDE
     Indication: Follicular lymphoma
     Dosage: DAILY DOSE(S): 20 MG C1-21; DAY 1 TO 21, EVERY 1 DAYS
     Route: 048
     Dates: start: 20230816
  2. LENALIDOMIDE [Suspect]
     Active Substance: LENALIDOMIDE
     Indication: Follicular lymphoma
     Route: 048
     Dates: start: 20230816
  3. ALLOPURINOL [Concomitant]
     Active Substance: ALLOPURINOL
     Indication: Prophylaxis
     Dosage: DOSE(S): 300 MG, 3/DAYS
     Dates: start: 20230816
  4. ALLOPURINOL [Concomitant]
     Active Substance: ALLOPURINOL
     Indication: Prophylaxis
     Dosage: TIME INTERVAL: 0.33333333 DAYS: DOSAGE TEXT: 300 MG, 3/DAYS
     Route: 065
     Dates: start: 20230816
  5. OMEPRAZOLE [Concomitant]
     Active Substance: OMEPRAZOLE
     Indication: Prophylaxis against gastrointestinal ulcer
     Route: 065
     Dates: start: 20230816
  6. TRIMETHOPRIM SULFATE [Concomitant]
     Active Substance: TRIMETHOPRIM SULFATE
     Indication: Antifungal prophylaxis
     Dosage: DOSAGE TEXT: 400/80MG, EVERY 1 DAYS
     Route: 065
     Dates: start: 20230816
  7. ACYCLOVIR [Concomitant]
     Active Substance: ACYCLOVIR
     Indication: Antiviral prophylaxis
     Dosage: DOSAGE TEXT: 400 MG, 2/DAYS
     Route: 065
     Dates: start: 20230816
  8. SULFAMETHOXAZOLE\TRIMETHOPRIM [Concomitant]
     Active Substance: SULFAMETHOXAZOLE\TRIMETHOPRIM
     Indication: Antifungal prophylaxis
     Route: 065
     Dates: start: 20230816
  9. ONDANSETRON [Concomitant]
     Active Substance: ONDANSETRON
     Indication: Prophylaxis of nausea and vomiting
     Dosage: TIME INTERVAL: 0.33333333 DAYS: DOSE(S): 8 MG, 3/DAYS
     Route: 065
     Dates: start: 20230816
  10. EPCORITAMAB [Suspect]
     Active Substance: EPCORITAMAB
     Indication: Follicular lymphoma
     Dosage: DAILY DOSE(S): 48 MG C1 (STEP-UP), CYCLES 2 - 3 (WEEKLY) AND C4-12 (EVERY 4 WEEKS) PER PROTOCOL, ...
     Route: 058
     Dates: start: 20230816, end: 20230920
  11. EPCORITAMAB [Suspect]
     Active Substance: EPCORITAMAB
     Indication: Follicular lymphoma
     Dosage: DOSAGE TEXT: PRIMING DOSE; C1, D1, TOTAL; 0.8 MG INTERMEDIATE DOSE; C1, D8, TOTAL; 48 MG FULL DOS...
     Route: 058
     Dates: start: 20230913
  12. EPCORITAMAB [Suspect]
     Active Substance: EPCORITAMAB
     Indication: Follicular lymphoma
     Dosage: DOSAGE TEXT: PRIMING DOSE; C1, D1, TOTAL; 0.8 MG INTERMEDIATE DOSE; C1, D8, TOTAL; 48 MG FULL DOS...
     Route: 058
     Dates: start: 20230816, end: 20230816
  13. EPCORITAMAB [Suspect]
     Active Substance: EPCORITAMAB
     Indication: Follicular lymphoma
     Dosage: DOSAGE TEXT: PRIMING DOSE; C1, D1, TOTAL; 0.8 MG INTERMEDIATE DOSE; C1, D8, TOTAL; 48 MG FULL DOS...
     Route: 058
     Dates: start: 20230823, end: 20230823
  14. EPCORITAMAB [Suspect]
     Active Substance: EPCORITAMAB
     Indication: Follicular lymphoma
     Dosage: DOSAGE TEXT: PRIMING DOSE; C1, D1, TOTAL; 0.8 MG INTERMEDIATE DOSE; C1, D8, TOTAL; 48 MG FULL DOS...
     Route: 058
     Dates: start: 20230830, end: 20230830
  15. RITUXIMAB [Suspect]
     Active Substance: RITUXIMAB
     Indication: Follicular lymphoma
     Dosage: DAILY DOSE(S): 738.56 MG, EVERY 4 WEEKS
     Route: 042
     Dates: start: 20230913
  16. RITUXIMAB [Suspect]
     Active Substance: RITUXIMAB
     Indication: Follicular lymphoma
     Dosage: DOSAGE TEXT: EVERY 4 WEEKS
     Route: 042
     Dates: start: 20230913
  17. RITUXIMAB [Suspect]
     Active Substance: RITUXIMAB
     Indication: Follicular lymphoma
     Dosage: DAILY DOSE(S): 747.45 MG, EVERY 1 WEEKS;
     Route: 042
     Dates: start: 20230816, end: 20230906
  18. RITUXIMAB [Suspect]
     Active Substance: RITUXIMAB
     Indication: Follicular lymphoma
     Dosage: DOSAGE TEXT: EVERY 1 WEEKS
     Route: 042
     Dates: start: 20230816, end: 20230906

REACTIONS (4)
  - Febrile neutropenia [Recovered/Resolved]
  - Pyrexia [Not Recovered/Not Resolved]
  - Asthenia [Not Recovered/Not Resolved]
  - Cytomegalovirus infection [Recovered/Resolved]

NARRATIVE: CASE EVENT DATE: 20230925
